FAERS Safety Report 22059859 (Version 1)
Quarter: 2023Q1

REPORT INFORMATION
  Report Type: Spontaneous
  Country: US (occurrence: None)
  Receive Date: 20230302
  Receipt Date: 20230302
  Transmission Date: 20230418
  Serious: Yes (Other)
  Sender: FDA-Public Use
  Company Number: None

PATIENT
  Age: 47 Year
  Sex: Female
  Weight: 60 kg

DRUGS (1)
  1. VENOFER [Suspect]
     Active Substance: IRON SUCROSE

REACTIONS (9)
  - Back pain [None]
  - Abdominal pain [None]
  - Muscle spasms [None]
  - Nausea [None]
  - Infusion related reaction [None]
  - Oedema peripheral [None]
  - Skin discolouration [None]
  - Urticaria [None]
  - Therapy cessation [None]

NARRATIVE: CASE EVENT DATE: 20230222
